FAERS Safety Report 25576717 (Version 1)
Quarter: 2025Q3

REPORT INFORMATION
  Report Type: Spontaneous
  Country: US (occurrence: US)
  Receive Date: 20250718
  Receipt Date: 20250718
  Transmission Date: 20251021
  Serious: Yes (Other)
  Sender: MEDEXUS PHARMA
  Company Number: US-MEDEXUS PHARMA, INC.-2025MED00203

PATIENT
  Sex: Male

DRUGS (13)
  1. RASUVO [Suspect]
     Active Substance: METHOTREXATE SODIUM
     Indication: Rheumatoid arthritis
     Dosage: 15 MG, 1X/WEEK, INTO STOMACH
     Dates: start: 2023
  2. ELIQUIS [Concomitant]
     Active Substance: APIXABAN
  3. MULTAQ [Concomitant]
     Active Substance: DRONEDARONE
  4. SYMBICORT [Concomitant]
     Active Substance: BUDESONIDE\FORMOTEROL FUMARATE DIHYDRATE
  5. SULFASALAZINE [Concomitant]
     Active Substance: SULFASALAZINE
  6. ATORVASTATIN [Concomitant]
     Active Substance: ATORVASTATIN
  7. FOLIC ACID [Concomitant]
     Active Substance: FOLIC ACID
  8. IRBESARTAN [Concomitant]
     Active Substance: IRBESARTAN
  9. HYDROXYCHLOROQUINE [Concomitant]
     Active Substance: HYDROXYCHLOROQUINE
  10. TAMSULOSIN HYDROCHLORIDE [Concomitant]
     Active Substance: TAMSULOSIN HYDROCHLORIDE
  11. AMLODIPINE [Concomitant]
     Active Substance: AMLODIPINE BESYLATE
  12. CITALOPRAM [Concomitant]
     Active Substance: CITALOPRAM
     Dates: end: 202505
  13. VITAMIN D3 [Concomitant]
     Active Substance: CHOLECALCIFEROL
     Dosage: UNK, 1X/DAY

REACTIONS (4)
  - Cerebrovascular accident [Unknown]
  - Device delivery system issue [Recovered/Resolved]
  - Device issue [Recovered/Resolved]
  - Device leakage [Recovered/Resolved]

NARRATIVE: CASE EVENT DATE: 20240101
